FAERS Safety Report 4219921 (Version 2)
Quarter: 2013Q1

REPORT INFORMATION
  Report Type: Spontaneous
  Country: US (occurrence: US)
  Receive Date: 20040921
  Receipt Date: 20130320
  Transmission Date: 20140127
  Serious: Yes (Death, Other)
  Sender: FDA-Public Use
  Company Number: US-JNJFOC-20040903663

PATIENT
  Age: 32 Year
  Sex: Female

DRUGS (4)
  1. MOTRIN IB [Suspect]
     Route: 048
  2. MOTRIN IB [Suspect]
     Indication: SUICIDE ATTEMPT
     Route: 048
  3. QUETIAPINE [Suspect]
     Indication: SUICIDE ATTEMPT
     Route: 048
  4. EFFEXOR [Suspect]
     Indication: SUICIDE ATTEMPT
     Route: 048

REACTIONS (6)
  - Completed suicide [Fatal]
  - Blood creatine phosphokinase increased [Fatal]
  - Aspiration [Fatal]
  - Intentional overdose [Unknown]
  - Convulsion [Fatal]
  - Renal failure [Fatal]
